FAERS Safety Report 8915689 (Version 1)
Quarter: 2012Q4

REPORT INFORMATION
  Report Type: 
  Country: US (occurrence: US)
  Receive Date: 20121119
  Receipt Date: 20121119
  Transmission Date: 20130627
  Serious: No
  Sender: FDA-Public Use
  Company Number: US-ASTRAZENECA-2011SE15155

PATIENT
  Sex: Female

DRUGS (6)
  1. SEROQUEL XR [Suspect]
     Indication: DEPRESSION
     Route: 048
     Dates: start: 2011, end: 2011
  2. SEROQUEL XR [Suspect]
     Indication: AGORAPHOBIA
     Route: 048
     Dates: start: 2011, end: 2011
  3. SEROQUEL XR [Suspect]
     Indication: DEPRESSION
     Route: 048
  4. SEROQUEL XR [Suspect]
     Indication: AGORAPHOBIA
     Route: 048
  5. SEROQUEL XR [Suspect]
     Indication: DEPRESSION
     Route: 048
  6. SEROQUEL XR [Suspect]
     Indication: AGORAPHOBIA
     Route: 048

REACTIONS (4)
  - Mania [Unknown]
  - Somnolence [Unknown]
  - Drug ineffective [Unknown]
  - Off label use [Unknown]
